FAERS Safety Report 19931247 (Version 1)
Quarter: 2021Q4

REPORT INFORMATION
  Report Type: Spontaneous
  Country: US (occurrence: US)
  Receive Date: 20211007
  Receipt Date: 20211007
  Transmission Date: 20220303
  Serious: Yes (Other)
  Sender: FDA-Public Use
  Company Number: US-PFIZER INC-202101264764

PATIENT
  Age: 60 Year
  Sex: Female
  Weight: 80.29 kg

DRUGS (7)
  1. CHANTIX [Suspect]
     Active Substance: VARENICLINE TARTRATE
     Indication: Smoking cessation therapy
     Dosage: 0.5 MG (ONE STARTING WEEK 0.5MG X 11 TABLETS )
  2. CHANTIX [Suspect]
     Active Substance: VARENICLINE TARTRATE
     Dosage: 1 MG (CONTINUING WEEK 1MG X 42 TABLETS)
  3. ATORVASTATIN [Concomitant]
     Active Substance: ATORVASTATIN
     Indication: Blood cholesterol
     Dosage: 20 MG, 1X/DAY
  4. LOSARTAN POTASSIUM [Concomitant]
     Active Substance: LOSARTAN POTASSIUM
     Indication: Blood pressure measurement
     Dosage: 25 MG, 1X/DAY
     Route: 048
  5. NIFEDIPINE [Concomitant]
     Active Substance: NIFEDIPINE
     Indication: Blood pressure measurement
     Dosage: 60 MG, 1X/DAY
  6. METFORMIN [Concomitant]
     Active Substance: METFORMIN HYDROCHLORIDE
     Indication: Diabetes mellitus
     Dosage: 500 MG, 1X/DAY
  7. FAMOTIDINE [Concomitant]
     Active Substance: FAMOTIDINE
     Indication: Gastrooesophageal reflux disease
     Dosage: 20 MG, 1X/DAY

REACTIONS (8)
  - Ulcer [Unknown]
  - Poor quality product administered [Unknown]
  - Recalled product administered [Unknown]
  - Dyspnoea [Unknown]
  - Chest pain [Unknown]
  - Anxiety [Unknown]
  - Blood cholesterol increased [Unknown]
  - Blood glucose increased [Unknown]
